FAERS Safety Report 10387645 (Version 1)
Quarter: 2014Q3

REPORT INFORMATION
  Report Type: Spontaneous
  Country: AU (occurrence: NZ)
  Receive Date: 20140815
  Receipt Date: 20140815
  Transmission Date: 20150326
  Serious: Yes (Other)
  Sender: FDA-Public Use
  Company Number: NZ-BAUSCH-BL-2014-003795

PATIENT
  Age: 48 Year
  Sex: Female

DRUGS (1)
  1. TETRACAINE HYDROCHLORIDE. [Suspect]
     Active Substance: TETRACAINE HYDROCHLORIDE
     Indication: PRODUCT USED FOR UNKNOWN INDICATION

REACTIONS (2)
  - Skin test positive [Unknown]
  - Anaphylactic reaction [Unknown]
